FAERS Safety Report 21027556 (Version 1)
Quarter: 2022Q2

REPORT INFORMATION
  Report Type: Spontaneous
  Country: US (occurrence: US)
  Receive Date: 20220630
  Receipt Date: 20220630
  Transmission Date: 20220721
  Serious: Yes (Other)
  Sender: FDA-Public Use
  Company Number: US-PURDUE-USA-2022-0294809

PATIENT

DRUGS (2)
  1. DILAUDID [Interacting]
     Active Substance: HYDROMORPHONE HYDROCHLORIDE
     Indication: Pain
     Dosage: UNKNOWN
     Route: 048
  2. MINIPRESS [Interacting]
     Active Substance: PRAZOSIN HYDROCHLORIDE
     Indication: Post-traumatic stress disorder
     Dosage: UNKNOWN
     Route: 065

REACTIONS (25)
  - Myocardial infarction [Unknown]
  - Pulmonary embolism [Unknown]
  - Kidney infection [Unknown]
  - Cellulitis [Unknown]
  - Osteomalacia [Unknown]
  - Osteomyelitis chronic [Unknown]
  - Pneumonia [Unknown]
  - Abdominal pain [Unknown]
  - Anxiety [Unknown]
  - Emotional distress [Unknown]
  - General physical health deterioration [Unknown]
  - Injury [Unknown]
  - Bronchitis [Unknown]
  - Throat irritation [Unknown]
  - Weight fluctuation [Unknown]
  - Clostridium test positive [Unknown]
  - Product administration error [Unknown]
  - Abscess [Unknown]
  - Anaemia [Unknown]
  - Foot deformity [Unknown]
  - Haemangioma of skin [Unknown]
  - Infection [Unknown]
  - Mononeuritis [Unknown]
  - Neoplasm skin [Unknown]
  - Drug interaction [Unknown]
